FAERS Safety Report 25922968 (Version 1)
Quarter: 2025Q4

REPORT INFORMATION
  Report Type: Spontaneous
  Country: JP (occurrence: JP)
  Receive Date: 20251015
  Receipt Date: 20251015
  Transmission Date: 20260119
  Serious: Yes (Other)
  Sender: ASTELLAS
  Company Number: JP-ASTELLAS-2025-AER-055506

PATIENT
  Sex: Female

DRUGS (3)
  1. VESICARE [Suspect]
     Active Substance: SOLIFENACIN SUCCINATE
     Indication: Hypertonic bladder
     Route: 048
     Dates: start: 201412, end: 201511
  2. MAGNESIUM OXIDE [Concomitant]
     Active Substance: MAGNESIUM OXIDE
     Indication: Constipation
     Route: 048
  3. LOXOPROFEN [Concomitant]
     Active Substance: LOXOPROFEN
     Indication: Proctalgia
     Route: 048

REACTIONS (13)
  - Cataract [Unknown]
  - Physical deconditioning [Unknown]
  - Apathy [Unknown]
  - Bacterial infection [Unknown]
  - Abdominal pain lower [Not Recovered/Not Resolved]
  - Proctalgia [Not Recovered/Not Resolved]
  - Bladder pain [Not Recovered/Not Resolved]
  - Constipation [Unknown]
  - Faecal volume increased [Unknown]
  - Flatulence [Unknown]
  - Strabismus [Unknown]
  - Lens disorder [Unknown]
  - Drug ineffective [Unknown]

NARRATIVE: CASE EVENT DATE: 20151101
